FAERS Safety Report 11878542 (Version 3)
Quarter: 2016Q1

REPORT INFORMATION
  Report Type: Spontaneous
  Country: US (occurrence: US)
  Receive Date: 20151230
  Receipt Date: 20160129
  Transmission Date: 20160526
  Serious: No
  Sender: FDA-Public Use
  Company Number: US-BRISTOL-MYERS SQUIBB COMPANY-BMS-2015-089386

PATIENT
  Sex: Female
  Weight: 87 kg

DRUGS (27)
  1. ABILIFY MAINTENA [Suspect]
     Active Substance: ARIPIPRAZOLE
     Dosage: 300 MG, QMO
     Route: 030
     Dates: start: 20151008
  2. LORAZEPAM. [Concomitant]
     Active Substance: LORAZEPAM
     Indication: PRODUCT USED FOR UNKNOWN INDICATION
     Dosage: 1 TAB, TID
     Route: 048
     Dates: start: 20131014, end: 20131125
  3. LORAZEPAM. [Concomitant]
     Active Substance: LORAZEPAM
     Dosage: 1 TAB, TID
     Route: 048
     Dates: start: 20150429, end: 20150527
  4. ABILIFY [Suspect]
     Active Substance: ARIPIPRAZOLE
     Indication: PRODUCT USED FOR UNKNOWN INDICATION
     Dosage: 5 MG, QD
     Route: 048
     Dates: start: 20150709, end: 20150812
  5. ABILIFY [Suspect]
     Active Substance: ARIPIPRAZOLE
     Dosage: 20 MG, UNK
     Route: 048
     Dates: start: 20151021, end: 20151120
  6. ABILIFY MAINTENA [Suspect]
     Active Substance: ARIPIPRAZOLE
     Indication: SCHIZOPHRENIA
     Dosage: 300 MG, QMO
     Route: 030
     Dates: start: 20150812
  7. INVEGA [Concomitant]
     Active Substance: PALIPERIDONE
     Indication: PRODUCT USED FOR UNKNOWN INDICATION
     Dosage: 1 TAB, QD
     Route: 048
     Dates: start: 20131219, end: 20131220
  8. INVEGA SUSTENNA [Concomitant]
     Active Substance: PALIPERIDONE PALMITATE
     Dosage: 1 DF, QMO
     Route: 030
     Dates: end: 20140129
  9. DIPHENHYDRAMINE HCL [Concomitant]
     Active Substance: DIPHENHYDRAMINE HYDROCHLORIDE
     Dosage: 10 ML, BID
     Route: 048
     Dates: end: 20140424
  10. DIPHENHYDRAMINE HCL [Concomitant]
     Active Substance: DIPHENHYDRAMINE HYDROCHLORIDE
     Dosage: 15 ML, TID
     Route: 048
     Dates: start: 20151019
  11. INVEGA SUSTENNA [Concomitant]
     Active Substance: PALIPERIDONE PALMITATE
     Indication: PRODUCT USED FOR UNKNOWN INDICATION
     Dosage: 1 DF, QMO
     Route: 030
     Dates: start: 20141017, end: 20150316
  12. AMBIEN [Concomitant]
     Active Substance: ZOLPIDEM TARTRATE
     Indication: PRODUCT USED FOR UNKNOWN INDICATION
     Dosage: 1 TAB, QD
     Route: 048
     Dates: start: 20151125
  13. ABILIFY MAINTENA [Suspect]
     Active Substance: ARIPIPRAZOLE
     Dosage: 300 MG, QMO
     Route: 030
     Dates: start: 20150909
  14. ZOLPIDEM [Concomitant]
     Active Substance: ZOLPIDEM\ZOLPIDEM TARTRATE
     Indication: PRODUCT USED FOR UNKNOWN INDICATION
     Dosage: 1 TAB, QD
     Route: 048
     Dates: start: 20130719, end: 20150713
  15. BENZTROPINE [Concomitant]
     Active Substance: BENZTROPINE
     Indication: PRODUCT USED FOR UNKNOWN INDICATION
     Dosage: 0.5 MG, BID
     Route: 048
     Dates: start: 20151012, end: 20151028
  16. DIPHENHYDRAMINE HCL [Concomitant]
     Active Substance: DIPHENHYDRAMINE HYDROCHLORIDE
     Dosage: 15 ML, QID
     Route: 048
     Dates: start: 20140915, end: 20150114
  17. DIPHENHYDRAMINE HCL [Concomitant]
     Active Substance: DIPHENHYDRAMINE HYDROCHLORIDE
     Dosage: 15 ML, TID
     Route: 048
     Dates: start: 20150319, end: 20150429
  18. LORAZEPAM. [Concomitant]
     Active Substance: LORAZEPAM
     Dosage: 1 TAB, BID
     Route: 048
     Dates: start: 20150527, end: 20150909
  19. DIPHENHYDRAMINE HCL [Concomitant]
     Active Substance: DIPHENHYDRAMINE HYDROCHLORIDE
     Indication: PRODUCT USED FOR UNKNOWN INDICATION
     Dosage: 10 ML, QID
     Route: 048
     Dates: start: 20140522, end: 20140915
  20. DIPHENHYDRAMINE HCL [Concomitant]
     Active Substance: DIPHENHYDRAMINE HYDROCHLORIDE
     Dosage: 10 ML, TID
     Route: 048
     Dates: start: 20140424, end: 20140522
  21. LORAZEPAM. [Concomitant]
     Active Substance: LORAZEPAM
     Dosage: 1 TAB, TID
     Route: 048
     Dates: start: 20131125, end: 20140102
  22. ABILIFY [Suspect]
     Active Substance: ARIPIPRAZOLE
     Dosage: 20 MG, UNK
     Route: 048
     Dates: start: 20151125
  23. LORAZEPAM. [Concomitant]
     Active Substance: LORAZEPAM
     Dosage: 1 TAB, TID
     Route: 048
     Dates: start: 20140124, end: 20140131
  24. INVEGA [Concomitant]
     Active Substance: PALIPERIDONE
     Dosage: UNK UNK, QD
     Route: 048
     Dates: start: 20141017, end: 20141027
  25. INVEGA [Concomitant]
     Active Substance: PALIPERIDONE
     Dosage: 1 TAB, QD
     Route: 048
     Dates: start: 20150401, end: 20150709
  26. LORAZEPAM. [Concomitant]
     Active Substance: LORAZEPAM
     Dosage: 1 DF, TID
     Route: 048
     Dates: start: 20150909, end: 20150910
  27. LORAZEPAM. [Concomitant]
     Active Substance: LORAZEPAM
     Dosage: 1 TAB, TID
     Route: 048
     Dates: start: 20151014, end: 20151015

REACTIONS (4)
  - Hypoaesthesia [Not Recovered/Not Resolved]
  - Unevaluable event [Not Recovered/Not Resolved]
  - Treatment noncompliance [Not Recovered/Not Resolved]
  - Paraesthesia [Not Recovered/Not Resolved]

NARRATIVE: CASE EVENT DATE: 2015
